FAERS Safety Report 9423074 (Version 1)
Quarter: 2013Q3

REPORT INFORMATION
  Report Type: Spontaneous
  Country: GB (occurrence: None)
  Receive Date: 20130719
  Receipt Date: 20130719
  Transmission Date: 20140515
  Serious: Yes (Hospitalization)
  Sender: FDA-Public Use
  Company Number: BTG00076

PATIENT
  Age: 75 Year
  Sex: Male

DRUGS (2)
  1. DIGIFAB [Suspect]
     Indication: TOXICITY TO VARIOUS AGENTS
     Dosage: 80 MG, SINGLE (2 VIALS)
     Dates: start: 20130705, end: 20130705
  2. DIGOXIN (DIGOXIN) [Suspect]
     Indication: PRODUCT USED FOR UNKNOWN INDICATION

REACTIONS (6)
  - Hyperkalaemia [None]
  - Bradycardia [None]
  - Drug effect incomplete [None]
  - Toxicity to various agents [None]
  - Loss of consciousness [None]
  - Atrial fibrillation [None]
